FAERS Safety Report 21499188 (Version 1)
Quarter: 2022Q4

REPORT INFORMATION
  Report Type: Spontaneous
  Country: FR (occurrence: FR)
  Receive Date: 20221024
  Receipt Date: 20221024
  Transmission Date: 20230113
  Serious: Yes (Death, Hospitalization, Other)
  Sender: FDA-Public Use
  Company Number: None

PATIENT
  Age: 80 Year
  Sex: Male

DRUGS (2)
  1. ABILIFY [Suspect]
     Active Substance: ARIPIPRAZOLE
     Indication: Persecutory delusion
     Dosage: UNK
     Route: 048
     Dates: start: 202205
  2. ALITRETINOIN [Suspect]
     Active Substance: ALITRETINOIN
     Indication: Cutaneous T-cell lymphoma
     Dosage: 30 MG, QD
     Route: 048
     Dates: start: 202203, end: 20220526

REACTIONS (4)
  - Persecutory delusion [Fatal]
  - Anxiety [Fatal]
  - Completed suicide [Fatal]
  - Product use in unapproved indication [Unknown]

NARRATIVE: CASE EVENT DATE: 20220526
